FAERS Safety Report 17907366 (Version 2)
Quarter: 2020Q2

REPORT INFORMATION
  Report Type: Spontaneous
  Country: TR (occurrence: TR)
  Receive Date: 20200617
  Receipt Date: 20200618
  Transmission Date: 20200714
  Serious: Yes (Other)
  Sender: FDA-Public Use
  Company Number: TR-PFIZER INC-2020233934

PATIENT
  Age: 35 Year
  Sex: Male

DRUGS (2)
  1. ASPIRINE [Concomitant]
     Active Substance: ASPIRIN
     Dosage: UNK
  2. CHAMPIX [Suspect]
     Active Substance: VARENICLINE TARTRATE
     Indication: SMOKING CESSATION THERAPY
     Dosage: UNK
     Dates: start: 202002

REACTIONS (3)
  - Drug dependence [Unknown]
  - Prescription drug used without a prescription [Unknown]
  - Abnormal dreams [Recovering/Resolving]

NARRATIVE: CASE EVENT DATE: 2020
